FAERS Safety Report 17231214 (Version 1)
Quarter: 2020Q1

REPORT INFORMATION
  Report Type: Spontaneous
  Country: US (occurrence: US)
  Receive Date: 20200103
  Receipt Date: 20200103
  Transmission Date: 20200409
  Serious: No
  Sender: FDA-Public Use
  Company Number: US-PFIZER INC-2019560617

PATIENT
  Age: 64 Year

DRUGS (2)
  1. PREMARIN [Suspect]
     Active Substance: ESTROGENS, CONJUGATED
     Indication: SPINAL STENOSIS
     Dosage: 1.25 MG, UNK
  2. PREMARIN [Suspect]
     Active Substance: ESTROGENS, CONJUGATED
     Indication: OSTEOGENESIS IMPERFECTA

REACTIONS (4)
  - Insomnia [Unknown]
  - Hot flush [Unknown]
  - Product use in unapproved indication [Unknown]
  - Off label use [Unknown]
